FAERS Safety Report 8113766-4 (Version None)
Quarter: 2012Q1

REPORT INFORMATION
  Report Type: 
  Country: None (occurrence: None)
  Receive Date: 20120203
  Receipt Date: 20070731
  Transmission Date: 20120608
  Serious: Yes (Other)
  Sender: FDA-Public Use
  Company Number: NL-ABBOTT-12P-114-0900945-00

PATIENT
  Sex: Female
  Weight: 90 kg

DRUGS (7)
  1. VIOXX [Concomitant]
     Indication: ARTHRALGIA
  2. INSULIN [Concomitant]
     Indication: DIABETES MELLITUS
  3. PANCREASE [Concomitant]
     Indication: SMALL INTESTINE CARCINOMA
     Dosage: 3 X 2
  4. FUROSEMIDE [Concomitant]
     Indication: OEDEMA PERIPHERAL
  5. VIOXX [Concomitant]
  6. TEVETEN [Suspect]
     Indication: ESSENTIAL HYPERTENSION
     Dosage: 600 MG/DAY
     Dates: start: 20021213
  7. ANALOGUES [Concomitant]
     Indication: DIABETES MELLITUS

REACTIONS (1)
  - OSTEOARTHRITIS [None]
